FAERS Safety Report 16786218 (Version 1)
Quarter: 2019Q3

REPORT INFORMATION
  Report Type: Spontaneous
  Country: CN (occurrence: CN)
  Receive Date: 20190909
  Receipt Date: 20190909
  Transmission Date: 20191005
  Serious: Yes (Other)
  Sender: FDA-Public Use
  Company Number: CN-PFIZER INC-2019382834

PATIENT
  Sex: Male

DRUGS (1)
  1. AMLODIPINE BESILATE [Suspect]
     Active Substance: AMLODIPINE BESYLATE
     Indication: BLOOD PRESSURE ABNORMAL
     Dosage: 5 MG, 1X/DAY

REACTIONS (6)
  - Cataract [Unknown]
  - Deafness bilateral [Unknown]
  - External ear cellulitis [Unknown]
  - Diabetic foot [Unknown]
  - Abscess of external auditory meatus [Unknown]
  - Ear pain [Not Recovered/Not Resolved]
